FAERS Safety Report 7120809-3 (Version None)
Quarter: 2010Q4

REPORT INFORMATION
  Report Type: 
  Country: None (occurrence: None)
  Receive Date: 20101118
  Receipt Date: 20101118
  Transmission Date: 20110411
  Serious: No
  Sender: FDA-Public Use
  Company Number: None

PATIENT
  Sex: Male

DRUGS (3)
  1. SYMBICORT [Suspect]
     Dosage: INHALE 1 PUFF BY MOUTH FOUR TIMES DAILY
     Route: 055
     Dates: start: 20090801
  2. COMBIVENT [Concomitant]
  3. SPIRIVA [Concomitant]

REACTIONS (1)
  - DEVICE MALFUNCTION [None]
